FAERS Safety Report 9506429 (Version 1)
Quarter: 2013Q1

REPORT INFORMATION
  Report Type: Spontaneous
  Country: US (occurrence: None)
  Receive Date: 20130301
  Receipt Date: 20130301
  Transmission Date: 20140127
  Serious: Yes (Other)
  Sender: FDA-Public Use
  Company Number: RB-37468-2012

PATIENT
  Age: 24 Month
  Sex: Male

DRUGS (1)
  1. SUBOXONE [Suspect]
     Indication: ACCIDENTAL EXPOSURE TO PRODUCT BY CHILD
     Dosage: ACCIDENTAL DRUG DOSE CHILD PUT IN MOUTH - IMMEDIATELY REMOVED
     Dates: start: 20120216, end: 20120216

REACTIONS (1)
  - Accidental exposure to product by child [None]
